FAERS Safety Report 12439719 (Version 1)
Quarter: 2016Q2

REPORT INFORMATION
  Report Type: Spontaneous
  Country: FR (occurrence: FR)
  Receive Date: 20160606
  Receipt Date: 20160606
  Transmission Date: 20160815
  Serious: Yes (Other)
  Sender: FDA-Public Use
  Company Number: FR-PFIZER INC-2016284638

PATIENT
  Age: 13 Year
  Sex: Female

DRUGS (1)
  1. XANAX [Suspect]
     Active Substance: ALPRAZOLAM
     Dosage: UNK

REACTIONS (3)
  - Drug administered to patient of inappropriate age [Unknown]
  - Depression [Unknown]
  - Suicide attempt [Unknown]

NARRATIVE: CASE EVENT DATE: 201510
